FAERS Safety Report 9981431 (Version 1)
Quarter: 2014Q1

REPORT INFORMATION
  Report Type: Spontaneous
  Country: FR (occurrence: FR)
  Receive Date: 20140307
  Receipt Date: 20140307
  Transmission Date: 20141002
  Serious: Yes (Other)
  Sender: FDA-Public Use
  Company Number: FR-009507513-1402FRA013660

PATIENT
  Sex: Female

DRUGS (2)
  1. NEXPLANON [Suspect]
     Indication: PRODUCT USED FOR UNKNOWN INDICATION
     Route: 059
  2. RIFADIN [Interacting]
     Indication: TUBERCULOSIS

REACTIONS (3)
  - Abortion induced [Unknown]
  - Unintended pregnancy [Recovered/Resolved]
  - Drug interaction [Recovered/Resolved]
